FAERS Safety Report 18284054 (Version 3)
Quarter: 2020Q4

REPORT INFORMATION
  Report Type: Report from Study
  Country: DE (occurrence: DE)
  Receive Date: 20200918
  Receipt Date: 20201218
  Transmission Date: 20210113
  Serious: Yes (Other)
  Sender: FDA-Public Use
  Company Number: DE-EMD SERONO-9185333

PATIENT
  Age: 50 Year
  Sex: Male
  Weight: 98 kg

DRUGS (6)
  1. SAIZEN [Suspect]
     Active Substance: SOMATROPIN
     Route: 058
     Dates: start: 20200904
  2. BISOPROLOL [Suspect]
     Active Substance: BISOPROLOL
     Dosage: DOSE DECREASED (UNSPECIFIED DOSE)
     Route: 048
     Dates: start: 2020
  3. SAIZEN [Suspect]
     Active Substance: SOMATROPIN
     Route: 058
     Dates: end: 20200601
  4. SAIZEN [Suspect]
     Active Substance: SOMATROPIN
     Indication: GROWTH HORMONE DEFICIENCY
     Dosage: 0.15 (UNSPECIFIED UNITS)
     Route: 058
     Dates: start: 20140505, end: 202005
  5. BISOPROLOL [Suspect]
     Active Substance: BISOPROLOL
     Dosage: DOSE INCREASED (UNSPECIFIED DOSE)
     Route: 048
  6. BISOPROLOL [Suspect]
     Active Substance: BISOPROLOL
     Indication: CARDIOMYOPATHY
     Route: 048
     Dates: start: 20161001

REACTIONS (1)
  - Cardiovascular disorder [Not Recovered/Not Resolved]

NARRATIVE: CASE EVENT DATE: 20200602
